FAERS Safety Report 21111892 (Version 1)
Quarter: 2022Q3

REPORT INFORMATION
  Report Type: Spontaneous
  Country: US (occurrence: US)
  Receive Date: 20220721
  Receipt Date: 20220721
  Transmission Date: 20221026
  Serious: No
  Sender: FDA-Public Use
  Company Number: US-PFIZER INC-2020478069

PATIENT
  Age: 69 Year
  Sex: Male
  Weight: 109.75 kg

DRUGS (3)
  1. RAPAMUNE [Suspect]
     Active Substance: SIROLIMUS
     Indication: Extramammary Paget^s disease
     Dosage: UNK, 2X/DAY (FOR 8 WEEKS)
     Dates: start: 20201113
  2. RAPAMUNE [Suspect]
     Active Substance: SIROLIMUS
     Dosage: UNK, 2X/DAY (0.4% OINTMENT TWICE DAILY FOR 8 WEEKS)
     Dates: end: 20220405
  3. IMIQUIMOD [Suspect]
     Active Substance: IMIQUIMOD
     Indication: Extramammary Paget^s disease
     Dosage: UNK
     Dates: start: 20200710, end: 20220405

REACTIONS (5)
  - Off label use [Unknown]
  - Drug ineffective for unapproved indication [Unknown]
  - Off label use [Unknown]
  - Skin irritation [Unknown]
  - Scab [Unknown]

NARRATIVE: CASE EVENT DATE: 20201214
